FAERS Safety Report 7738584-8 (Version None)
Quarter: 2011Q3

REPORT INFORMATION
  Report Type: 
  Country: None (occurrence: None)
  Receive Date: 20110908
  Receipt Date: 20110830
  Transmission Date: 20111222
  Serious: Yes (Other)
  Sender: FDA-Public Use
  Company Number: US-AMGEN-USASP2011044654

PATIENT
  Age: 45 Year
  Sex: Female

DRUGS (2)
  1. ENBREL [Suspect]
     Indication: RHEUMATOID ARTHRITIS
     Dosage: 50 MG, QWK
     Dates: start: 20110726, end: 20110823
  2. ENBREL [Suspect]
     Indication: PSORIASIS

REACTIONS (5)
  - ABDOMINAL TENDERNESS [None]
  - ABDOMINAL PAIN [None]
  - ALANINE AMINOTRANSFERASE INCREASED [None]
  - ABDOMINAL DISTENSION [None]
  - GAMMA-GLUTAMYLTRANSFERASE INCREASED [None]
